FAERS Safety Report 10580939 (Version 1)
Quarter: 2014Q4

REPORT INFORMATION
  Report Type: Spontaneous
  Country: GB (occurrence: None)
  Receive Date: 20141110
  Receipt Date: 20141110
  Transmission Date: 20150529
  Serious: Yes (Disabling)
  Sender: FDA-Public Use
  Company Number: GB-H14001-14-01513

PATIENT
  Age: 71 Year
  Sex: Male

DRUGS (7)
  1. CO-AMOXICLAV [Suspect]
     Active Substance: AMOXICILLIN\CLAVULANIC ACID
     Indication: PRODUCT USED FOR UNKNOWN INDICATION
     Dates: start: 20141023
  2. VENTOLIN (SALBUTAMOL) (SALBUTAMOL) [Concomitant]
  3. RAMIPRIL (RAMIPRIL) (RAMIPRIL) [Concomitant]
     Active Substance: RAMIPRIL
  4. INDAPAMIDE (INDAPAMIDE) (INDAPAMIDE) [Concomitant]
     Active Substance: INDAPAMIDE
  5. SIMVASTATIN (SIMVASTATIN (SIMVASTATIN) [Concomitant]
  6. DOXAZOSIN (DOXAZOSIN) (DOXAZOSIN) [Concomitant]
  7. TIOTROPIUM (TIOTROPIUM) (TIOTROPIUM) [Concomitant]
     Active Substance: TIOTROPIUM

REACTIONS (2)
  - Lethargy [None]
  - Malaise [None]

NARRATIVE: CASE EVENT DATE: 2014
